FAERS Safety Report 23487126 (Version 1)
Quarter: 2024Q1

REPORT INFORMATION
  Report Type: Spontaneous
  Country: CN (occurrence: CN)
  Receive Date: 20240206
  Receipt Date: 20240206
  Transmission Date: 20240410
  Serious: Yes (Other)
  Sender: FDA-Public Use
  Company Number: CN-BAYER-2024A020722

PATIENT
  Age: 42 Year
  Sex: Female

DRUGS (2)
  1. ULTRAVIST [Suspect]
     Active Substance: IOPROMIDE
     Indication: Computerised tomogram
     Dosage: 100 ML, ONCE
     Route: 042
     Dates: start: 20240131, end: 20240131
  2. ULTRAVIST [Suspect]
     Active Substance: IOPROMIDE
     Indication: Breast cancer

REACTIONS (9)
  - Anaphylactic shock [Recovering/Resolving]
  - Circumoral swelling [Recovering/Resolving]
  - Oxygen saturation decreased [Recovered/Resolved]
  - Blood pressure decreased [Recovered/Resolved]
  - Discomfort [Recovering/Resolving]
  - Respiratory rate increased [Recovered/Resolved]
  - Oropharyngeal discomfort [Recovering/Resolving]
  - Dizziness [Recovering/Resolving]
  - Muscular weakness [Recovering/Resolving]

NARRATIVE: CASE EVENT DATE: 20240131
